FAERS Safety Report 9346048 (Version 2)
Quarter: 2013Q2

REPORT INFORMATION
  Report Type: Report from Study
  Country: CA (occurrence: CA)
  Receive Date: 20130613
  Receipt Date: 20130625
  Transmission Date: 20140414
  Serious: Yes (Other)
  Sender: FDA-Public Use
  Company Number: CA-ROCHE-1099505

PATIENT
  Age: 72 Year
  Sex: Female
  Weight: 102.5 kg

DRUGS (19)
  1. RITUXAN [Suspect]
     Indication: RHEUMATOID ARTHRITIS
     Route: 042
     Dates: start: 20120725
  2. RITUXAN [Suspect]
     Route: 042
     Dates: start: 20130604, end: 20130604
  3. SOLU-MEDROL [Concomitant]
     Route: 042
     Dates: start: 20130604, end: 20130604
  4. SIMVASTATIN [Concomitant]
  5. LORAZEPAM [Concomitant]
  6. ATENOLOL [Concomitant]
  7. ADALAT [Concomitant]
  8. MAVIK [Concomitant]
  9. BUPROPION SR [Concomitant]
  10. OMEPRAZOLE [Concomitant]
  11. SLOW-K [Concomitant]
  12. MACROBID [Concomitant]
  13. HYDROCHLOROTHIAZIDE [Concomitant]
     Dosage: AS REQUIRED
     Route: 065
  14. ACETAMINOPHEN [Concomitant]
     Dosage: AS REQUIRED
     Route: 065
  15. HYDROMORPHONE [Concomitant]
     Dosage: AS REQUIRED
     Route: 065
  16. DIPHENHYDRAMINE HCL [Concomitant]
     Route: 048
     Dates: start: 20120725
  17. ACETAMINOPHEN [Concomitant]
     Route: 048
     Dates: start: 20120725
  18. METHYLPREDNISOLONE [Concomitant]
     Route: 042
     Dates: start: 20120725
  19. WARFARIN [Concomitant]

REACTIONS (10)
  - Palpitations [Recovered/Resolved]
  - Dyspnoea [Recovered/Resolved]
  - Throat tightness [Recovered/Resolved]
  - Throat irritation [Recovered/Resolved]
  - Hypoaesthesia [Recovered/Resolved]
  - Paraesthesia [Recovered/Resolved]
  - Tinnitus [Recovered/Resolved]
  - Tremor [Recovered/Resolved]
  - Dysgeusia [Recovered/Resolved]
  - Sinus congestion [Recovered/Resolved]
